FAERS Safety Report 9011670 (Version 1)
Quarter: 2013Q1

REPORT INFORMATION
  Report Type: Spontaneous
  Country: US (occurrence: US)
  Receive Date: 20130108
  Receipt Date: 20130108
  Transmission Date: 20140127
  Serious: Yes (Other)
  Sender: FDA-Public Use
  Company Number: US-PFIZER INC-2013003577

PATIENT
  Sex: Female

DRUGS (2)
  1. DILANTIN-125 [Suspect]
     Dosage: 100 MG, UNK
     Dates: start: 20090803
  2. DILANTIN-125 [Suspect]
     Dosage: 50 MG, UNK

REACTIONS (1)
  - Convulsion [Unknown]
